FAERS Safety Report 20045734 (Version 1)
Quarter: 2021Q4

REPORT INFORMATION
  Report Type: Spontaneous
  Country: US (occurrence: None)
  Receive Date: 20211108
  Receipt Date: 20211108
  Transmission Date: 20220303
  Serious: Yes (Other)
  Sender: FDA-Public Use
  Company Number: None

PATIENT
  Age: 57 Year
  Sex: Female
  Weight: 69.75 kg

DRUGS (1)
  1. REGEN-COV [Suspect]
     Active Substance: CASIRIVIMAB\IMDEVIMAB
     Indication: COVID-19
     Dosage: OTHER FREQUENCY : ONCE;?
     Route: 040

REACTIONS (8)
  - Chest discomfort [None]
  - Erythema [None]
  - Erythema [None]
  - Vertigo [None]
  - Dizziness [None]
  - Pallor [None]
  - Dyspnoea [None]
  - Dry mouth [None]

NARRATIVE: CASE EVENT DATE: 20211106
